FAERS Safety Report 23457231 (Version 7)
Quarter: 2025Q1

REPORT INFORMATION
  Report Type: Report from Study
  Country: DE (occurrence: DE)
  Receive Date: 20240130
  Receipt Date: 20250227
  Transmission Date: 20250409
  Serious: Yes (Hospitalization, Other)
  Sender: SANOFI AVENTIS
  Company Number: DE-002147023-NVSC2022DE021688

PATIENT
  Age: 66 Year
  Sex: Male
  Weight: 119 kg

DRUGS (47)
  1. TAMSULOSIN HYDROCHLORIDE [Suspect]
     Active Substance: TAMSULOSIN HYDROCHLORIDE
     Indication: Product used for unknown indication
     Dosage: 0.4 MG, QD (0.4 MG, ONCE DAILY (1-0-0))
  2. TAMSULOSIN HYDROCHLORIDE [Suspect]
     Active Substance: TAMSULOSIN HYDROCHLORIDE
     Dosage: 0.4 MG, QD 0.4 MG, ONCE DAILY (1-0-0)
  3. TAMSULOSIN HYDROCHLORIDE [Suspect]
     Active Substance: TAMSULOSIN HYDROCHLORIDE
     Dosage: 0.4 MG, QD ( (0.4 MG, ONCE DAILY (1-0-0)
  4. TAMSULOSIN HYDROCHLORIDE [Suspect]
     Active Substance: TAMSULOSIN HYDROCHLORIDE
     Dosage: 0.4 MG, QD (0.4 MG, ONCE DAILY (1-0-0)
     Route: 065
  5. TAMSULOSIN HYDROCHLORIDE [Suspect]
     Active Substance: TAMSULOSIN HYDROCHLORIDE
     Dosage: 0.4 MG, QD (0.4 MG, ONCE DAILY (1-0-0)
     Route: 065
  6. ASPIRIN [Suspect]
     Active Substance: ASPIRIN
     Indication: Product used for unknown indication
     Dosage: 100 MG, QD (100 MG, ONCE DAILY (1-0-0))
     Route: 065
  7. RAMIPRIL [Suspect]
     Active Substance: RAMIPRIL
     Indication: Product used for unknown indication
     Dosage: 5 MG, QD (5 MG, QD (2.5 MG, BID (1-0-1))
     Route: 065
  8. RAMIPRIL [Suspect]
     Active Substance: RAMIPRIL
     Dosage: 2.5 MG, BID (2.5 MG, TWICE DAILY (1-0-1))
     Route: 065
  9. SIMVASTATIN [Suspect]
     Active Substance: SIMVASTATIN
     Indication: Product used for unknown indication
     Dosage: 20 MG, QD (20 MG, ONCE DAILY (0-0-1)
     Route: 065
  10. COSENTYX [Suspect]
     Active Substance: SECUKINUMAB
     Indication: Psoriasis
     Dosage: 300 MG, MONTHLY (QMO)
     Route: 058
     Dates: start: 20160112, end: 20160119
  11. COSENTYX [Suspect]
     Active Substance: SECUKINUMAB
     Indication: Psoriatic arthropathy
  12. ZARATOR [ATORVASTATIN] [Concomitant]
     Indication: Product used for unknown indication
     Dosage: UNK, QD
     Route: 065
  13. TICAGRELOR [Concomitant]
     Active Substance: TICAGRELOR
     Indication: Product used for unknown indication
     Dosage: UNK, QD (UNK, QD UNK, BID (1-0-1)
     Route: 065
  14. TICAGRELOR [Concomitant]
     Active Substance: TICAGRELOR
     Dosage: UNK, Q12H (DOSE DESCRIPTION : UNK UNK, TWICE DAILY (1-0-1)
     Route: 065
  15. NI LI AN [CANDESARTAN CILEXETIL] [Concomitant]
     Indication: Product used for unknown indication
     Dosage: UNK UNK, QD (UNK, BID (1-0-1))
     Route: 065
  16. NI LI AN [CANDESARTAN CILEXETIL] [Concomitant]
     Dosage: UNK, Q12H (UNK, Q12H DOSE DESCRIPTION : UNK)
  17. PANTOPRAZOLE [Concomitant]
     Active Substance: PANTOPRAZOLE
     Indication: Product used for unknown indication
     Dosage: DOSE DESCRIPTION : UNK, QD (1-0-0)
  18. PANTOPRAZOLE [Concomitant]
     Active Substance: PANTOPRAZOLE
     Dosage: UNK, QD (1-0-0)
  19. PANTOPRAZOLE [Concomitant]
     Active Substance: PANTOPRAZOLE
  20. PANTOPRAZOLE [Concomitant]
     Active Substance: PANTOPRAZOLE
     Dosage: UNK, QD (1-0-0)
  21. PANTOPRAZOLE [Concomitant]
     Active Substance: PANTOPRAZOLE
  22. PANTOPRAZOLE [Concomitant]
     Active Substance: PANTOPRAZOLE
     Dosage: DOSE DESCRIPTION : UNK UNK, ONCE DAILY (1-0-0)
     Route: 065
  23. PANTOPRAZOLE [Concomitant]
     Active Substance: PANTOPRAZOLE
     Dosage: DOSE DESCRIPTION : UNK UNK, ONCE DAILY (1-0-0)
     Route: 065
  24. PANTOPRAZOLE [Concomitant]
     Active Substance: PANTOPRAZOLE
     Dosage: 40 MG, QD (1-0-1, THEN 1-0-0 FOR 2 WEEKS)
     Route: 065
  25. PANTOPRAZOLE [Concomitant]
     Active Substance: PANTOPRAZOLE
     Dosage: 40 MG QD
     Route: 065
  26. PANTOPRAZOLE [Concomitant]
     Active Substance: PANTOPRAZOLE
     Dosage: 40 MG, QD (UNK, QD, (1-0-0))
     Route: 065
  27. PANTOPRAZOLE [Concomitant]
     Active Substance: PANTOPRAZOLE
     Dosage: UNK, QD, (1-0-0)
     Route: 065
  28. PANTOPRAZOLE [Concomitant]
     Active Substance: PANTOPRAZOLE
     Dosage: UNK, QD, (1-0-0)
     Route: 065
  29. PANTOPRAZOLE [Concomitant]
     Active Substance: PANTOPRAZOLE
     Dosage: 40 MG, QD (UNK UNK, QD (1-0-0))
     Route: 065
  30. PANTOPRAZOLE [Concomitant]
     Active Substance: PANTOPRAZOLE
     Dosage: 40 MG, QD (UNK, QD, (1-0-0))
     Route: 065
  31. BISOPROLOL [Concomitant]
     Active Substance: BISOPROLOL
     Indication: Product used for unknown indication
     Dosage: UNK, QD (ONCE DAILY (1-0-0))
  32. BISOPROLOL [Concomitant]
     Active Substance: BISOPROLOL
     Dosage: UNK, QD (ONCE DAILY (1-0-0)
     Route: 065
  33. CLOPIDOGREL [Concomitant]
     Active Substance: CLOPIDOGREL BISULFATE
     Indication: Product used for unknown indication
  34. CLOPIDOGREL [Concomitant]
     Active Substance: CLOPIDOGREL BISULFATE
     Route: 065
  35. METRONIDAZOLE [Concomitant]
     Active Substance: METRONIDAZOLE
     Indication: Gastrointestinal inflammation
  36. METRONIDAZOLE [Concomitant]
     Active Substance: METRONIDAZOLE
     Route: 065
  37. METRONIDAZOLE [Concomitant]
     Active Substance: METRONIDAZOLE
     Route: 065
  38. METRONIDAZOLE [Concomitant]
     Active Substance: METRONIDAZOLE
     Dosage: UNK, QD (0-0-1)
     Route: 065
  39. METRONIDAZOLE [Concomitant]
     Active Substance: METRONIDAZOLE
     Route: 065
  40. METRONIDAZOLE [Concomitant]
     Active Substance: METRONIDAZOLE
     Dosage: UNK UNKNOWN FREQ. (1-1-1 UP TO AND INCLUDING 15/12/2022)
     Route: 065
  41. TADALAFIL [Concomitant]
     Active Substance: TADALAFIL
     Indication: Product used for unknown indication
     Dosage: UNK, QD ((1-0-0))
  42. TADALAFIL [Concomitant]
     Active Substance: TADALAFIL
  43. AMOXICILLIN\CLAVULANIC ACID [Concomitant]
     Active Substance: AMOXICILLIN\CLAVULANIC ACID
     Indication: Gastrointestinal inflammation
  44. AMOXICILLIN\CLAVULANIC ACID [Concomitant]
     Active Substance: AMOXICILLIN\CLAVULANIC ACID
     Dosage: UNK, QD (UNK, TID)
  45. AMOXICILLIN\CLAVULANIC ACID [Concomitant]
     Active Substance: AMOXICILLIN\CLAVULANIC ACID
     Dosage: UNK, QD
  46. AMOXICILLIN\CLAVULANIC ACID [Concomitant]
     Active Substance: AMOXICILLIN\CLAVULANIC ACID
     Dosage: UNK, QD
  47. AMOXICILLIN\CLAVULANIC ACID [Concomitant]
     Active Substance: AMOXICILLIN\CLAVULANIC ACID
     Dosage: UNK, QD ((UNK UNK, QD, (1-0-0)))

REACTIONS (45)
  - Acute myocardial infarction [Recovered/Resolved]
  - Myocardial infarction [Recovered/Resolved]
  - Pancreatitis acute [Recovered/Resolved]
  - Pancreatitis acute [Recovered/Resolved]
  - Chronic coronary syndrome [Not Recovered/Not Resolved]
  - Haematochezia [Recovered/Resolved]
  - Diverticulum intestinal haemorrhagic [Recovered/Resolved]
  - Thrombosis [Unknown]
  - Coronary artery stenosis [Recovered/Resolved]
  - Hepatic steatosis [Recovered/Resolved]
  - Diverticulum [Recovered/Resolved]
  - Hepatic steatosis [Recovered/Resolved]
  - Aortic aneurysm [Unknown]
  - Large intestine polyp [Unknown]
  - Colitis [Recovered/Resolved]
  - Diverticulum intestinal haemorrhagic [Recovered/Resolved]
  - Gastritis [Recovered/Resolved]
  - Anaemia [Recovered/Resolved]
  - Rectal haemorrhage [Unknown]
  - Disease recurrence [Recovered/Resolved]
  - Diverticulum intestinal haemorrhagic [Recovered/Resolved]
  - Gastritis erosive [Unknown]
  - Intestinal polyp [Not Recovered/Not Resolved]
  - Blood loss anaemia [Recovered/Resolved]
  - Haematochezia [Recovered/Resolved]
  - Granuloma [Recovered/Resolved]
  - Blood glucose increased [Unknown]
  - Chest discomfort [Unknown]
  - Gastrooesophageal reflux disease [Recovered/Resolved]
  - Blood creatinine increased [Recovered/Resolved]
  - Obesity [Unknown]
  - Lipase increased [Unknown]
  - Haemoglobin decreased [Unknown]
  - Haemorrhoids [Recovered/Resolved]
  - Hiatus hernia [Recovered/Resolved]
  - General physical health deterioration [Unknown]
  - Mean cell haemoglobin increased [Unknown]
  - Haematocrit decreased [Unknown]
  - White blood cell count increased [Recovered/Resolved]
  - Red blood cell count decreased [Unknown]
  - Abdominal pain upper [Unknown]
  - Renal cyst [Unknown]
  - C-reactive protein increased [Recovered/Resolved]
  - Benign prostatic hyperplasia [Unknown]
  - Blood alkaline phosphatase increased [Unknown]

NARRATIVE: CASE EVENT DATE: 20200601
